FAERS Safety Report 6634700-X (Version None)
Quarter: 2010Q1

REPORT INFORMATION
  Report Type: 
  Country: None (occurrence: None)
  Receive Date: 20100311
  Receipt Date: 20100311
  Transmission Date: 20100710
  Serious: No
  Sender: FDA-Public Use
  Company Number: None

PATIENT
  Sex: Female
  Weight: 86.1834 kg

DRUGS (1)
  1. METOCLOPRAMIDE HYDROCHLORIDE [Suspect]
     Indication: GASTRIC DISORDER
     Dosage: 5 MG 4 X DAILY
     Dates: start: 20080807, end: 20091201

REACTIONS (2)
  - DYSGRAPHIA [None]
  - TREMOR [None]
